FAERS Safety Report 5125560-7 (Version None)
Quarter: 2006Q4

REPORT INFORMATION
  Report Type: 
  Country: None (occurrence: None)
  Receive Date: 20061006
  Receipt Date: 20060925
  Transmission Date: 20070319
  Serious: No
  Sender: FDA-Public Use
  Company Number: 06H-163-0310482-00

PATIENT

DRUGS (1)
  1. ETOMIDATE [Suspect]
     Indication: SEDATIVE THERAPY

REACTIONS (3)
  - BRUXISM [None]
  - INTUBATION COMPLICATION [None]
  - MYOCLONUS [None]
